FAERS Safety Report 4838979-6 (Version None)
Quarter: 2005Q4

REPORT INFORMATION
  Report Type: 
  Country: None (occurrence: None)
  Receive Date: 20051025
  Receipt Date: 20041102
  Transmission Date: 20060501
  Serious: No
  Sender: FDA-Public Use
  Company Number: 04H-163-0279725-00

PATIENT
  Age: 63 Year
  Sex: Female

DRUGS (1)
  1. VECURONIUM BROMIDE [Suspect]
     Indication: NEUROMUSCULAR BLOCKADE

REACTIONS (1)
  - NEUROMUSCULAR BLOCK PROLONGED [None]
